FAERS Safety Report 18980061 (Version 1)
Quarter: 2021Q1

REPORT INFORMATION
  Report Type: Spontaneous
  Country: US (occurrence: US)
  Receive Date: 20210305
  Receipt Date: 20210305
  Transmission Date: 20210420
  Serious: Yes (Hospitalization)
  Sender: FDA-Public Use
  Company Number: None

PATIENT
  Age: 52 Year
  Sex: Male

DRUGS (9)
  1. ALBUTEROL AER [Concomitant]
     Active Substance: ALBUTEROL
  2. SUCRALFATE. [Concomitant]
     Active Substance: SUCRALFATE
  3. SOFOS/VELPAT 400MG?100MG TAB [Suspect]
     Active Substance: SOFOSBUVIR\VELPATASVIR
     Indication: CHRONIC HEPATITIS C
     Dosage: ?          OTHER DOSE:1 TAB;?
     Route: 048
  4. TRAMADOL HOL [Concomitant]
  5. GABAPENTIN. [Concomitant]
     Active Substance: GABAPENTIN
  6. MORPHINE SUL [Concomitant]
     Active Substance: MORPHINE SULFATE
  7. TIZANIDINE. [Concomitant]
     Active Substance: TIZANIDINE
  8. DICYCLOMINE [Concomitant]
     Active Substance: DICYCLOMINE HYDROCHLORIDE
  9. NABUMETONE. [Concomitant]
     Active Substance: NABUMETONE

REACTIONS (2)
  - Cholecystectomy [None]
  - Cholelithiasis [None]

NARRATIVE: CASE EVENT DATE: 20210222
